FAERS Safety Report 11020800 (Version 1)
Quarter: 2015Q2

REPORT INFORMATION
  Report Type: Spontaneous
  Country: US (occurrence: US)
  Receive Date: 20150413
  Receipt Date: 20150413
  Transmission Date: 20150821
  Serious: Yes (Hospitalization)
  Sender: FDA-Public Use
  Company Number: US-BIOGENIDEC-2015BI045128

PATIENT
  Sex: Male

DRUGS (1)
  1. TECFIDERA [Suspect]
     Active Substance: DIMETHYL FUMARATE
     Indication: MULTIPLE SCLEROSIS
     Route: 048
     Dates: start: 20150130, end: 20150329

REACTIONS (10)
  - Nasopharyngitis [Unknown]
  - Vomiting [Recovered/Resolved]
  - Rhinorrhoea [Unknown]
  - Abdominal discomfort [Recovered/Resolved]
  - Herpes virus infection [Unknown]
  - Hypersensitivity [Not Recovered/Not Resolved]
  - Feeling abnormal [Unknown]
  - Musculoskeletal stiffness [Unknown]
  - Flushing [Recovered/Resolved]
  - Upper respiratory tract congestion [Unknown]
